FAERS Safety Report 25413869 (Version 8)
Quarter: 2025Q3

REPORT INFORMATION
  Report Type: Spontaneous
  Country: US (occurrence: US)
  Receive Date: 20250609
  Receipt Date: 20250918
  Transmission Date: 20251021
  Serious: Yes (Other)
  Sender: PFIZER
  Company Number: US-PFIZER INC-202500117152

PATIENT
  Age: 50 Year
  Sex: Female
  Weight: 34.467 kg

DRUGS (8)
  1. TIVDAK [Suspect]
     Active Substance: TISOTUMAB VEDOTIN-TFTV
     Dosage: 155 MG, EVERY 21 DAYS
  2. TIVDAK [Suspect]
     Active Substance: TISOTUMAB VEDOTIN-TFTV
     Dosage: 100 MG, EVERY 3 WEEKS
  3. TIVDAK [Suspect]
     Active Substance: TISOTUMAB VEDOTIN-TFTV
  4. TIVDAK [Suspect]
     Active Substance: TISOTUMAB VEDOTIN-TFTV
     Route: 042
     Dates: start: 20250509
  5. TIVDAK [Suspect]
     Active Substance: TISOTUMAB VEDOTIN-TFTV
     Dosage: 100 MG, EVERY 3 WEEKS
     Route: 042
     Dates: start: 20250801
  6. TIVDAK [Suspect]
     Active Substance: TISOTUMAB VEDOTIN-TFTV
     Route: 042
     Dates: start: 20250822
  7. TIVDAK [Suspect]
     Active Substance: TISOTUMAB VEDOTIN-TFTV
     Route: 042
  8. TIVDAK [Suspect]
     Active Substance: TISOTUMAB VEDOTIN-TFTV
     Dosage: 90 MG, EVERY 21 DAYS (1.24MG/KG)

REACTIONS (3)
  - Malignant neoplasm progression [Unknown]
  - Weight decreased [Not Recovered/Not Resolved]
  - Off label use [Unknown]
